FAERS Safety Report 9439103 (Version 2)
Quarter: 2013Q3

REPORT INFORMATION
  Report Type: Spontaneous
  Country: US (occurrence: US)
  Receive Date: 20130802
  Receipt Date: 20130816
  Transmission Date: 20140515
  Serious: No
  Sender: FDA-Public Use
  Company Number: US-009507513-1307USA002049

PATIENT
  Age: 65 Year
  Sex: Male
  Weight: 68.27 kg

DRUGS (2)
  1. TICE BCG LIVE [Suspect]
     Indication: BLADDER CANCER
     Dosage: 1 STANDARD DOSE
     Dates: start: 20130702
  2. SODIUM CHLORIDE [Concomitant]

REACTIONS (4)
  - Wrong technique in drug usage process [Unknown]
  - Device issue [Unknown]
  - Device infusion issue [Unknown]
  - No adverse event [Unknown]
